FAERS Safety Report 4424877-9 (Version None)
Quarter: 2004Q3

REPORT INFORMATION
  Report Type: 
  Country: None (occurrence: None)
  Receive Date: 20040809
  Receipt Date: 20040729
  Transmission Date: 20050211
  Serious: Yes (Death)
  Sender: FDA-Public Use
  Company Number: F01200402273

PATIENT
  Age: 69 Year
  Sex: Female

DRUGS (2)
  1. (FONDAPARINUX SODIUM) - SOLUTION - UNIT DOSE : UNKNOWN [Suspect]
     Indication: ORTHOPEDIC PROCEDURE
     Dosage: 2.5 MG
     Route: 058
     Dates: start: 20040727, end: 20040728
  2. ACETAMINOPHEN [Concomitant]

REACTIONS (1)
  - MYOCARDIAL INFARCTION [None]
